FAERS Safety Report 8446972-X (Version None)
Quarter: 2012Q2

REPORT INFORMATION
  Report Type: 
  Country: None (occurrence: None)
  Receive Date: 20120619
  Receipt Date: 20120613
  Transmission Date: 20120825
  Serious: Yes (Hospitalization)
  Sender: FDA-Public Use
  Company Number: US-AMGEN-USASP2011020429

PATIENT
  Age: 45 Year
  Sex: Female
  Weight: 68.481 kg

DRUGS (2)
  1. ENBREL [Suspect]
     Dosage: 50 MG, QWK
     Dates: start: 20100427
  2. ENBREL [Suspect]
     Indication: RHEUMATOID ARTHRITIS
     Dosage: 50 MG, QWK
     Route: 058
     Dates: start: 20100426

REACTIONS (3)
  - NEPHROLITHIASIS [None]
  - KIDNEY INFECTION [None]
  - INCISION SITE PAIN [None]
